FAERS Safety Report 10460215 (Version 2)
Quarter: 2014Q4

REPORT INFORMATION
  Report Type: Spontaneous
  Country: JM (occurrence: JM)
  Receive Date: 20140917
  Receipt Date: 20141003
  Transmission Date: 20150528
  Serious: Yes (Other)
  Sender: FDA-Public Use
  Company Number: PHHY2014JM117157

PATIENT
  Sex: Female

DRUGS (2)
  1. LECTRUM [Suspect]
     Active Substance: LEUPROLIDE ACETATE
     Indication: UTERINE LEIOMYOMA
     Dosage: 4 OT, UNK
  2. LECTRUM [Suspect]
     Active Substance: LEUPROLIDE ACETATE
     Indication: MENORRHAGIA

REACTIONS (2)
  - Uterine leiomyoma [Not Recovered/Not Resolved]
  - Vaginal haemorrhage [Not Recovered/Not Resolved]
